FAERS Safety Report 16735001 (Version 3)
Quarter: 2019Q3

REPORT INFORMATION
  Report Type: Spontaneous
  Country: RU (occurrence: RU)
  Receive Date: 20190823
  Receipt Date: 20190829
  Transmission Date: 20191005
  Serious: Yes (Death, Hospitalization, Other)
  Sender: FDA-Public Use
  Company Number: RU-BAYER-2019-153148

PATIENT

DRUGS (1)
  1. ULTRAVIST [Suspect]
     Active Substance: IOPROMIDE
     Route: 013

REACTIONS (4)
  - Cardiac disorder [Fatal]
  - Suspected product quality issue [None]
  - Acute psychosis [None]
  - Delirium [None]

NARRATIVE: CASE EVENT DATE: 201906
